FAERS Safety Report 17906977 (Version 2)
Quarter: 2020Q2

REPORT INFORMATION
  Report Type: Spontaneous
  Country: US (occurrence: US)
  Receive Date: 20200617
  Receipt Date: 20200618
  Transmission Date: 20200714
  Serious: No
  Sender: FDA-Public Use
  Company Number: US-PFIZER INC-2020233182

PATIENT
  Age: 30 Year
  Sex: Female

DRUGS (2)
  1. XELJANZ [Suspect]
     Active Substance: TOFACITINIB CITRATE
     Dosage: UNK
  2. ENTYVIO [Suspect]
     Active Substance: VEDOLIZUMAB
     Dosage: UNK

REACTIONS (5)
  - Sunburn [Unknown]
  - Off label use [Unknown]
  - Product use issue [Unknown]
  - Alopecia [Unknown]
  - Photosensitivity reaction [Unknown]
